FAERS Safety Report 9678671 (Version 2)
Quarter: 2013Q4

REPORT INFORMATION
  Report Type: Spontaneous
  Country: US (occurrence: US)
  Receive Date: 20131108
  Receipt Date: 20131108
  Transmission Date: 20140711
  Serious: No
  Sender: FDA-Public Use
  Company Number: US-FOUGERA-2013FO000129

PATIENT
  Age: 76 Year
  Sex: Female
  Weight: 71.28 kg

DRUGS (3)
  1. ERYTHROMYCIN [Suspect]
     Indication: WOUND INFECTION
     Route: 061
     Dates: start: 20130506
  2. AMITIZA [Concomitant]
     Indication: DYSPEPSIA
     Route: 048
     Dates: start: 2012
  3. VERAPAMIL [Concomitant]
     Indication: HYPERTENSION
     Route: 048
     Dates: start: 2003

REACTIONS (2)
  - Application site pain [Recovered/Resolved]
  - Off label use [Not Recovered/Not Resolved]
